FAERS Safety Report 4991484-9 (Version None)
Quarter: 2006Q2

REPORT INFORMATION
  Report Type: 
  Country: None (occurrence: None)
  Receive Date: 20060502
  Receipt Date: 20060420
  Transmission Date: 20061013
  Serious: Yes (Hospitalization)
  Sender: FDA-Public Use
  Company Number: GXKR2006ES01953

PATIENT
  Age: 75 Year
  Sex: Male

DRUGS (2)
  1. DOXAZOSIN MESYLATE [Suspect]
     Indication: CARDIOVASCULAR DISORDER
  2. GINKGOBILOBA EXTRACT (NGX) (GINKGOBILOBA EXTRACT) [Suspect]
     Indication: CARDIOVASCULAR DISORDER

REACTIONS (9)
  - DEPRESSION [None]
  - DERMAL CYST [None]
  - DRUG INEFFECTIVE [None]
  - ENTROPION [None]
  - ONYCHOMADESIS [None]
  - SKIN HYPERPIGMENTATION [None]
  - SKIN HYPOPIGMENTATION [None]
  - STEVENS-JOHNSON SYNDROME [None]
  - TOXIC EPIDERMAL NECROLYSIS [None]
